FAERS Safety Report 16653808 (Version 1)
Quarter: 2019Q3

REPORT INFORMATION
  Report Type: Spontaneous
  Country: NO (occurrence: NO)
  Receive Date: 20190731
  Receipt Date: 20190731
  Transmission Date: 20191004
  Serious: Yes (Hospitalization)
  Sender: FDA-Public Use
  Company Number: NO-MYLANLABS-2019M1071545

PATIENT
  Sex: Male

DRUGS (5)
  1. FURADANTIN [Suspect]
     Active Substance: NITROFURANTOIN
     Indication: URINARY TRACT INFECTION
     Dosage: 50 MILLIGRAM, Q8H
     Route: 064
     Dates: start: 20180914, end: 20180921
  2. MIRTAZAPIN ORION [Suspect]
     Active Substance: MIRTAZAPINE
     Indication: ANXIETY
     Dosage: 15 MG AT NIGHT IF NECESSARY.
     Route: 064
     Dates: start: 20181023, end: 20181024
  3. TRUXAL                             /00012101/ [Suspect]
     Active Substance: CHLORPROTHIXENE
     Indication: ANXIETY
     Dosage: 2 DOSAGE FORMS AT NIGHT. STRENGTH OF DOSAGE FORMS NOT KNOWN.
     Route: 064
     Dates: start: 20180523, end: 20180914
  4. SEROQUEL [Suspect]
     Active Substance: QUETIAPINE FUMARATE
     Indication: ANXIETY
     Dosage: 100 MILLIGRAM, QD
     Route: 064
     Dates: start: 20181026
  5. CIPRALEX [Suspect]
     Active Substance: ESCITALOPRAM OXALATE
     Indication: ANXIETY
     Dosage: 5 MILLIGRAM, QD
     Route: 064
     Dates: start: 20181021, end: 20181030

REACTIONS (2)
  - Foetal exposure during pregnancy [Recovered/Resolved]
  - Duodenal stenosis [Unknown]

NARRATIVE: CASE EVENT DATE: 20181123
